APPROVED DRUG PRODUCT: CLINDAMYCIN PHOSPHATE IN 5% DEXTROSE IN PLASTIC CONTAINER
Active Ingredient: CLINDAMYCIN PHOSPHATE
Strength: EQ 12MG BASE/ML
Dosage Form/Route: INJECTABLE;INJECTION
Application: A203048 | Product #002 | TE Code: AP
Applicant: RISING PHARMA HOLDINGS INC
Approved: Apr 4, 2013 | RLD: No | RS: No | Type: RX